FAERS Safety Report 5323536-8 (Version None)
Quarter: 2007Q2

REPORT INFORMATION
  Report Type: 
  Country: None (occurrence: None)
  Receive Date: 20070514
  Receipt Date: 20070504
  Transmission Date: 20071010
  Serious: Yes (Life-Threatening)
  Sender: FDA-Public Use
  Company Number: GB-AMGEN-US219217

PATIENT
  Sex: Female
  Weight: 43.9 kg

DRUGS (11)
  1. ENBREL [Suspect]
     Indication: RHEUMATOID ARTHRITIS
     Route: 058
     Dates: start: 20060918, end: 20061121
  2. TELMISARTAN [Concomitant]
     Route: 048
  3. FOLIC ACID [Concomitant]
     Route: 048
     Dates: start: 20070125
  4. CALCICHEW [Concomitant]
     Route: 048
  5. METHYLPREDNISOLONE ACETATE [Concomitant]
     Dosage: 80 MG EVERY 1 TOT
     Route: 030
     Dates: start: 20061214, end: 20061214
  6. METHYLPREDNISOLONE ACETATE [Concomitant]
     Dosage: 80 MG EVERY 1 TOT
     Route: 030
     Dates: start: 20070213, end: 20070213
  7. METHOTREXATE [Concomitant]
     Route: 058
     Dates: start: 20070125
  8. METHOTREXATE [Concomitant]
     Route: 058
     Dates: end: 20070326
  9. PREDNISOLONE [Concomitant]
     Route: 048
     Dates: end: 20070401
  10. PREDNISOLONE [Concomitant]
     Route: 048
     Dates: start: 20070401
  11. BONIVA [Concomitant]
     Route: 048

REACTIONS (1)
  - BREAST CANCER METASTATIC [None]
